FAERS Safety Report 23581810 (Version 2)
Quarter: 2024Q1

REPORT INFORMATION
  Report Type: Spontaneous
  Country: US (occurrence: US)
  Receive Date: 20240229
  Receipt Date: 20240311
  Transmission Date: 20240410
  Serious: Yes (Other)
  Sender: FDA-Public Use
  Company Number: US-JNJFOC-20240258162

PATIENT
  Weight: 59.02 kg

DRUGS (1)
  1. TOPAMAX [Suspect]
     Active Substance: TOPIRAMATE
     Indication: Seizure
     Route: 048

REACTIONS (11)
  - Seizure [Unknown]
  - Feeling abnormal [Unknown]
  - Weight decreased [Unknown]
  - Decreased appetite [Unknown]
  - Depression [Unknown]
  - Asthenia [Unknown]
  - Drug ineffective [Unknown]
  - Memory impairment [Unknown]
  - Mood swings [Unknown]
  - Alopecia [Unknown]
  - Visual impairment [Unknown]
